FAERS Safety Report 5384024-6 (Version None)
Quarter: 2007Q3

REPORT INFORMATION
  Report Type: 
  Country: None (occurrence: None)
  Receive Date: 20070711
  Receipt Date: 20070703
  Transmission Date: 20080115
  Serious: Yes (Other)
  Sender: FDA-Public Use
  Company Number: US-ROCHE-498620

PATIENT
  Sex: Male

DRUGS (6)
  1. PEGASYS [Suspect]
     Indication: HEPATITIS C
     Route: 065
  2. PEGASYS [Suspect]
     Route: 065
  3. PEGASYS [Suspect]
     Route: 065
     Dates: start: 20070101
  4. RIBAVIRIN [Suspect]
     Indication: HEPATITIS C
     Route: 065
  5. RIBAVIRIN [Suspect]
     Route: 065
  6. RIBAVIRIN [Suspect]
     Route: 065
     Dates: start: 20070101

REACTIONS (3)
  - ADVERSE EVENT [None]
  - INJECTION SITE REACTION [None]
  - UPPER EXTREMITY MASS [None]
